FAERS Safety Report 6537546-6 (Version None)
Quarter: 2010Q1

REPORT INFORMATION
  Report Type: 
  Country: None (occurrence: None)
  Receive Date: 20100114
  Receipt Date: 20091207
  Transmission Date: 20100710
  Serious: Yes (Hospitalization, Other)
  Sender: FDA-Public Use
  Company Number: FR-SANOFI-AVENTIS-2009SA011218

PATIENT
  Age: 71 Year

DRUGS (9)
  1. OXALIPLATIN [Suspect]
     Indication: COLON CANCER
     Route: 041
     Dates: start: 20060719, end: 20060719
  2. OXALIPLATIN [Suspect]
     Route: 041
     Dates: start: 20060927, end: 20060927
  3. CETUXIMAB [Suspect]
     Indication: COLON CANCER
     Route: 042
     Dates: start: 20060719, end: 20060719
  4. CETUXIMAB [Suspect]
     Route: 042
     Dates: start: 20060927, end: 20060927
  5. FLUOROURACIL [Suspect]
     Indication: COLON CANCER
     Route: 042
     Dates: start: 20060719, end: 20060719
  6. FLUOROURACIL [Suspect]
     Route: 042
     Dates: start: 20060927, end: 20060927
  7. FOLINIC ACID [Suspect]
     Indication: COLON CANCER
     Route: 041
     Dates: start: 20060719, end: 20060719
  8. FOLINIC ACID [Suspect]
     Route: 041
     Dates: start: 20060927, end: 20060927
  9. FUROSEMIDE [Concomitant]
     Route: 065
     Dates: start: 20060930, end: 20061003

REACTIONS (3)
  - CARDIAC FAILURE CONGESTIVE [None]
  - DIARRHOEA [None]
  - HYPOKALAEMIA [None]
